FAERS Safety Report 7254626-0 (Version None)
Quarter: 2011Q1

REPORT INFORMATION
  Report Type: 
  Country: None (occurrence: None)
  Receive Date: 20110129
  Receipt Date: 20100305
  Transmission Date: 20110831
  Serious: No
  Sender: FDA-Public Use
  Company Number: US-ABBOTT-10P-163-0628058-00

PATIENT
  Sex: Male
  Weight: 149.82 kg

DRUGS (11)
  1. METFORMIN [Concomitant]
     Indication: TYPE 2 DIABETES MELLITUS
  2. CITALOPRAM [Concomitant]
     Indication: DEPRESSION
  3. ADVIL [Concomitant]
     Indication: PAIN
  4. ALEVE [Concomitant]
     Indication: PAIN
  5. HUMIRA [Suspect]
     Indication: PSORIASIS
  6. NOVOLOG [Concomitant]
     Indication: DIABETES MELLITUS
  7. HUMIRA [Suspect]
     Indication: PSORIATIC ARTHROPATHY
     Dates: start: 20090801, end: 20100122
  8. ALLOPURINOL [Concomitant]
     Indication: GOUT
  9. LEVIMIR INSULIN [Concomitant]
     Indication: DIABETES MELLITUS
  10. LISINOPRIL [Concomitant]
     Indication: HYPERTENSION
  11. CITALOPRAM [Concomitant]
     Indication: ANXIETY

REACTIONS (6)
  - PAIN [None]
  - BLOOD CHOLESTEROL INCREASED [None]
  - BLOOD TRIGLYCERIDES INCREASED [None]
  - GAIT DISTURBANCE [None]
  - CONDITION AGGRAVATED [None]
  - PSORIATIC ARTHROPATHY [None]
